FAERS Safety Report 6435246-4 (Version None)
Quarter: 2009Q4

REPORT INFORMATION
  Report Type: 
  Country: None (occurrence: None)
  Receive Date: 20091110
  Receipt Date: 20091029
  Transmission Date: 20100525
  Serious: Yes (Other)
  Sender: FDA-Public Use
  Company Number: DE-ELI_LILLY_AND_COMPANY-DE200910001341

PATIENT
  Sex: Female

DRUGS (3)
  1. BYETTA [Suspect]
     Indication: TYPE 2 DIABETES MELLITUS
     Dosage: 10 UG, UNKNOWN
     Route: 058
     Dates: start: 20090713, end: 20090915
  2. BYETTA [Suspect]
     Dosage: UNK, UNKNOWN
     Route: 065
     Dates: start: 20090101, end: 20091001
  3. METFORMIN HCL [Concomitant]
     Dosage: 850 D/F, 2/D
     Route: 065
     Dates: start: 20090713, end: 20090915

REACTIONS (4)
  - MENTAL DISORDER [None]
  - OEDEMA [None]
  - SUICIDAL IDEATION [None]
  - WEIGHT INCREASED [None]
